FAERS Safety Report 18010494 (Version 1)
Quarter: 2020Q3

REPORT INFORMATION
  Report Type: Spontaneous
  Country: US (occurrence: US)
  Receive Date: 20200710
  Receipt Date: 20200710
  Transmission Date: 20201103
  Serious: Yes (Hospitalization)
  Sender: FDA-Public Use
  Company Number: NVSC2020US184839

PATIENT
  Sex: Male

DRUGS (2)
  1. TACROLIMUS. [Suspect]
     Active Substance: TACROLIMUS
     Indication: CYSTIC FIBROSIS
     Dosage: 0.5 MG, BID
     Route: 048
  2. TACROLIMUS. [Suspect]
     Active Substance: TACROLIMUS
     Indication: PSEUDOMONAS INFECTION
     Dosage: 5 MG, BID
     Route: 048

REACTIONS (2)
  - Pulmonary oedema [Unknown]
  - Product use in unapproved indication [Unknown]
